FAERS Safety Report 8231286-3 (Version None)
Quarter: 2012Q1

REPORT INFORMATION
  Report Type: 
  Country: None (occurrence: None)
  Receive Date: 20120323
  Receipt Date: 20120309
  Transmission Date: 20120608
  Serious: Yes (Congenital Anomaly)
  Sender: FDA-Public Use
  Company Number: DE-RANBAXY-2012US-54103

PATIENT
  Sex: Male

DRUGS (1)
  1. ONDANSETRON [Suspect]
     Indication: MATERNAL EXPOSURE DURING DELIVERY
     Dosage: UNK, UNK
     Route: 064

REACTIONS (2)
  - FOETAL EXPOSURE DURING PREGNANCY [None]
  - HYPOSPADIAS [None]
